FAERS Safety Report 13129885 (Version 1)
Quarter: 2017Q1

REPORT INFORMATION
  Report Type: Spontaneous
  Country: US (occurrence: US)
  Receive Date: 20170118
  Receipt Date: 20170118
  Transmission Date: 20170428
  Serious: No
  Sender: FDA-Public Use
  Company Number: None

PATIENT
  Age: 52 Year
  Sex: Female
  Weight: 84.6 kg

DRUGS (10)
  1. MAXZIDE [Concomitant]
     Active Substance: HYDROCHLOROTHIAZIDE\TRIAMTERENE
  2. TOUJEO [Concomitant]
     Active Substance: INSULIN GLARGINE
  3. VICTOZA [Concomitant]
     Active Substance: LIRAGLUTIDE
  4. NEXIUM [Concomitant]
     Active Substance: ESOMEPRAZOLE MAGNESIUM
  5. CALCIUM MAGNSEIUM AND ZINC [Concomitant]
  6. FOLIC ACID. [Concomitant]
     Active Substance: FOLIC ACID
  7. LOSARTAN. [Concomitant]
     Active Substance: LOSARTAN
  8. VITAMIN B COMPLEX [Concomitant]
     Active Substance: CYANOCOBALAMIN\DEXPANTHENOL\NIACINAMIDE\PYRIDOXINE HYDROCHLORIDE\RIBOFLAVIN 5^-PHOSPHATE SODIUM\THIAMINE HYDROCHLORIDE\VITAMIN B COMPLEX
  9. FISH OIL [Concomitant]
     Active Substance: FISH OIL
  10. TANZEUM [Suspect]
     Active Substance: ALBIGLUTIDE
     Indication: DIABETES MELLITUS INADEQUATE CONTROL
     Dosage: QUANTITY:1 INJECTION(S);OTHER FREQUENCY:WEEKLY;?
     Route: 058
     Dates: start: 20160606, end: 20160715

REACTIONS (2)
  - Injection site rash [None]
  - Injection site erythema [None]

NARRATIVE: CASE EVENT DATE: 20160613
